FAERS Safety Report 10719442 (Version 2)
Quarter: 2015Q1

REPORT INFORMATION
  Report Type: Spontaneous
  Country: US (occurrence: US)
  Receive Date: 20150119
  Receipt Date: 20150330
  Transmission Date: 20150721
  Serious: No
  Sender: FDA-Public Use
  Company Number: US-009507513-1412USA012533

PATIENT
  Age: 73 Year
  Sex: Male
  Weight: 79 kg

DRUGS (33)
  1. VICTRELIS [Suspect]
     Active Substance: BOCEPREVIR
     Indication: HEPATITIS C
     Dosage: UNK, Q8H
     Route: 048
     Dates: start: 20120831, end: 20130508
  2. WARFARIN [Suspect]
     Active Substance: WARFARIN
     Indication: DEEP VEIN THROMBOSIS
     Dosage: 13.75MG TO 20MG/WEEK
     Dates: start: 200606, end: 201207
  3. WARFARIN [Suspect]
     Active Substance: WARFARIN
     Dosage: 17.5 MG, QW
     Route: 048
     Dates: start: 20120925, end: 20121001
  4. WARFARIN [Suspect]
     Active Substance: WARFARIN
     Dosage: 30 MG, QW
     Route: 048
     Dates: start: 20130227, end: 20130424
  5. REBETOL [Suspect]
     Active Substance: RIBAVIRIN
     Dosage: BID, 600 MG WEEKLY
     Route: 048
     Dates: start: 20121001, end: 20121010
  6. REBETOL [Suspect]
     Active Substance: RIBAVIRIN
     Dosage: BID, 400 MG WEEKLY
     Route: 048
     Dates: start: 20121127, end: 20121127
  7. PEGINTRON [Suspect]
     Active Substance: PEGINTERFERON ALFA-2B
     Indication: HEPATITIS C
     Dosage: UNK, QW
     Dates: start: 20120801, end: 20130508
  8. WARFARIN [Suspect]
     Active Substance: WARFARIN
     Dosage: 28.75 MG, QW
     Route: 048
     Dates: start: 20130508, end: 20130508
  9. WARFARIN [Suspect]
     Active Substance: WARFARIN
     Dosage: 20 MG, QW
     Route: 048
     Dates: start: 20121010, end: 20121010
  10. WARFARIN [Suspect]
     Active Substance: WARFARIN
     Dosage: 26.25 MG, QW
     Route: 048
     Dates: start: 20121024, end: 20121031
  11. WARFARIN [Suspect]
     Active Substance: WARFARIN
     Dosage: UNK
     Route: 048
     Dates: start: 20130612, end: 20130612
  12. REBETOL [Suspect]
     Active Substance: RIBAVIRIN
     Indication: HEPATITIS C
     Dosage: BID, 1200 MG WEEKLY
     Route: 048
     Dates: start: 20120801, end: 20120905
  13. REBETOL [Suspect]
     Active Substance: RIBAVIRIN
     Dosage: BID, 600 MG WEEKLY
     Route: 048
     Dates: start: 20121212, end: 20121212
  14. REBETOL [Suspect]
     Active Substance: RIBAVIRIN
     Dosage: BID, 200 MG WEEKLY
     Route: 048
     Dates: start: 20130227, end: 20130227
  15. WARFARIN [Suspect]
     Active Substance: WARFARIN
     Dosage: 26.25 MG, QW
     Route: 048
     Dates: start: 20130529, end: 20130529
  16. WARFARIN [Suspect]
     Active Substance: WARFARIN
     Indication: PULMONARY EMBOLISM
     Dosage: 15 MG, QW
     Route: 048
     Dates: start: 20120711, end: 20120919
  17. WARFARIN [Suspect]
     Active Substance: WARFARIN
     Dosage: 26.25 MG, QW
     Route: 048
     Dates: start: 20121114, end: 20121114
  18. WARFARIN [Suspect]
     Active Substance: WARFARIN
     Dosage: 27.5 MG, QW
     Route: 048
     Dates: start: 20121127, end: 20121212
  19. REBETOL [Suspect]
     Active Substance: RIBAVIRIN
     Dosage: BID, 200 MG WEEKLY
     Route: 048
     Dates: start: 20121016, end: 20121114
  20. REBETOL [Suspect]
     Active Substance: RIBAVIRIN
     Dosage: BID, 800 MG WEEKLY
     Route: 048
     Dates: start: 20121226, end: 20130130
  21. REBETOL [Suspect]
     Active Substance: RIBAVIRIN
     Dosage: BID, 400 MG WEEKLY
     Route: 048
     Dates: start: 20130313, end: 20130313
  22. WARFARIN [Suspect]
     Active Substance: WARFARIN
     Dosage: 27.5 MG, QW
     Route: 048
     Dates: start: 20121107, end: 20121107
  23. WARFARIN [Suspect]
     Active Substance: WARFARIN
     Dosage: 23.75 MG, QW
     Route: 048
     Dates: start: 20130516, end: 20130516
  24. WARFARIN [Suspect]
     Active Substance: WARFARIN
     Dosage: 23.75 MG, QW
     Route: 048
     Dates: start: 20130815
  25. WARFARIN [Suspect]
     Active Substance: WARFARIN
     Dosage: 23.75 MG, QW
     Route: 048
     Dates: start: 20121016, end: 20121016
  26. WARFARIN [Suspect]
     Active Substance: WARFARIN
     Dosage: 28.75 MG, QW
     Route: 048
     Dates: start: 20121226, end: 20130116
  27. REBETOL [Suspect]
     Active Substance: RIBAVIRIN
     Dosage: BID, 1000 MG WEEKLY
     Route: 048
     Dates: start: 20120919, end: 20120925
  28. REBETOL [Suspect]
     Active Substance: RIBAVIRIN
     Dosage: BID, 600 MG WEEKLY
     Route: 048
     Dates: start: 20130213, end: 20130213
  29. WARFARIN [Suspect]
     Active Substance: WARFARIN
     Dosage: 31.25 MG, QW
     Route: 048
     Dates: start: 20130130, end: 20130213
  30. WARFARIN [Suspect]
     Active Substance: WARFARIN
     Dosage: 25 MG, QW
     Route: 048
     Dates: start: 20130619, end: 20130710
  31. WARFARIN [Suspect]
     Active Substance: WARFARIN
     Dosage: 23.25 MG, QW
     Route: 048
     Dates: start: 20130724, end: 20130724
  32. REBETOL [Suspect]
     Active Substance: RIBAVIRIN
     Dosage: BID, 200 MG WEEKLY
     Route: 048
     Dates: start: 20130327, end: 20130410
  33. REBETOL [Suspect]
     Active Substance: RIBAVIRIN
     Dosage: BID, 400 MG WEEKLY
     Route: 048
     Dates: start: 20130424, end: 20130508

REACTIONS (2)
  - Drug interaction [Recovered/Resolved]
  - International normalised ratio decreased [Recovered/Resolved]

NARRATIVE: CASE EVENT DATE: 20120919
